FAERS Safety Report 20606749 (Version 3)
Quarter: 2022Q2

REPORT INFORMATION
  Report Type: Report from Study
  Country: IL (occurrence: IL)
  Receive Date: 20220317
  Receipt Date: 20220506
  Transmission Date: 20220721
  Serious: Yes (Other)
  Sender: FDA-Public Use
  Company Number: IL-SA-SAC20220316001820

PATIENT
  Age: 34 Year
  Sex: Female

DRUGS (2)
  1. DUPILUMAB [Suspect]
     Active Substance: DUPILUMAB
     Indication: Chronic rhinosinusitis with nasal polyps
     Dosage: 300 MG, QOW
     Route: 058
     Dates: start: 20220202
  2. DUPILUMAB [Suspect]
     Active Substance: DUPILUMAB
     Indication: Nasal polyps

REACTIONS (7)
  - Choking [Not Recovered/Not Resolved]
  - Cough [Recovered/Resolved]
  - Asthenia [Unknown]
  - Malaise [Unknown]
  - Eosinophil count increased [Unknown]
  - Hypersensitivity [Not Recovered/Not Resolved]
  - Product use in unapproved indication [Unknown]

NARRATIVE: CASE EVENT DATE: 20220202
